FAERS Safety Report 7098905-9 (Version None)
Quarter: 2010Q4

REPORT INFORMATION
  Report Type: 
  Country: None (occurrence: None)
  Receive Date: 20101112
  Receipt Date: 20101109
  Transmission Date: 20110411
  Serious: Yes (Hospitalization)
  Sender: FDA-Public Use
  Company Number: AT-AMGEN-KDC411178

PATIENT
  Sex: Male

DRUGS (14)
  1. PANITUMUMAB [Suspect]
     Indication: SQUAMOUS CELL CARCINOMA
     Dosage: 450 MG, UNK
     Route: 041
     Dates: start: 20100427
  2. DOCETAXEL [Suspect]
     Dosage: 75 MG/M2, UNK
     Route: 042
     Dates: start: 20100427
  3. CISPLATIN [Suspect]
     Dosage: 75 MG/M2, UNK
     Route: 042
     Dates: start: 20100427
  4. TAMSULOSIN [Concomitant]
     Dosage: 40 MG, UNK
     Dates: start: 20100426
  5. DICLOFENAC SODIUM [Concomitant]
     Dosage: 200 MG, UNK
     Dates: start: 20100426, end: 20100428
  6. TRAZODONE HCL [Concomitant]
     Dosage: 100 MG, UNK
     Dates: start: 20100426
  7. BUDESONIDE [Concomitant]
     Dosage: UNK UNK, UNK
     Dates: start: 20100427, end: 20100517
  8. DURAGESIC-100 [Concomitant]
     Dosage: 50 A?G, UNK
     Dates: start: 20100428
  9. DEXAMETHASONE [Concomitant]
     Dosage: 16 MG, UNK
     Dates: start: 20100426, end: 20100522
  10. EFFORTIL [Concomitant]
     Dosage: 60 GTT, UNK
     Dates: start: 20100426, end: 20100428
  11. ONDANSETRON HYDROCHLORIDE [Concomitant]
     Dosage: 24 MG, UNK
     Dates: start: 20100426, end: 20100517
  12. NEULASTA [Concomitant]
     Dosage: 6 MG, UNK
     Dates: start: 20100428, end: 20100428
  13. APREPITANT [Concomitant]
     Dosage: 80 MG, UNK
     Dates: start: 20100427, end: 20100522
  14. DOMINAL [Concomitant]
     Dosage: 80 MG, UNK
     Dates: start: 20100426

REACTIONS (3)
  - ASTHENIA [None]
  - DIARRHOEA [None]
  - STERNAL FRACTURE [None]
